FAERS Safety Report 7598105-X (Version None)
Quarter: 2011Q3

REPORT INFORMATION
  Report Type: 
  Country: None (occurrence: None)
  Receive Date: 20110708
  Receipt Date: 20110704
  Transmission Date: 20111222
  Serious: Yes (Hospitalization)
  Sender: FDA-Public Use
  Company Number: JP-SANOFI-AVENTIS-2011SA042825

PATIENT
  Age: 35 Year
  Sex: Female

DRUGS (2)
  1. TAXOTERE [Suspect]
     Indication: BREAST CANCER RECURRENT
     Dosage: 80MG/BODY
     Route: 041
     Dates: start: 20110201, end: 20110510
  2. TRASTUZUMAB [Concomitant]
     Indication: BREAST CANCER RECURRENT
     Route: 041

REACTIONS (2)
  - CARDIAC TAMPONADE [None]
  - PERICARDIAL HAEMORRHAGE [None]
